FAERS Safety Report 13474422 (Version 1)
Quarter: 2017Q2

REPORT INFORMATION
  Report Type: Spontaneous
  Country: US (occurrence: US)
  Receive Date: 20170424
  Receipt Date: 20170424
  Transmission Date: 20170830
  Serious: No
  Sender: FDA-Public Use
  Company Number: US-GE HEALTHCARE LIFE SCIENCES-2017CSU000895

PATIENT

DRUGS (1)
  1. GADOLINIUM (UNSPECIFIED) [Suspect]
     Active Substance: GADOLINIUM
     Indication: PRODUCT USED FOR UNKNOWN INDICATION
     Route: 065

REACTIONS (1)
  - Urine analysis abnormal [Unknown]
